FAERS Safety Report 18281006 (Version 2)
Quarter: 2020Q4

REPORT INFORMATION
  Report Type: Spontaneous
  Country: US (occurrence: US)
  Receive Date: 20200918
  Receipt Date: 20201223
  Transmission Date: 20210113
  Serious: No
  Sender: FDA-Public Use
  Company Number: US-KARYOPHARM-2020KPT000857

PATIENT

DRUGS (3)
  1. XPOVIO [Suspect]
     Active Substance: SELINEXOR
     Dosage: 100 MG, WEEKLY
     Route: 048
     Dates: start: 202010, end: 20201123
  2. XPOVIO [Suspect]
     Active Substance: SELINEXOR
     Indication: PLASMA CELL MYELOMA
     Dosage: 100 MG, WEEKLY
     Route: 048
     Dates: start: 20200727, end: 202010
  3. ZOFRAN [Concomitant]
     Active Substance: ONDANSETRON HYDROCHLORIDE
     Indication: PRODUCT USED FOR UNKNOWN INDICATION

REACTIONS (18)
  - Conjunctival haemorrhage [Unknown]
  - Tinnitus [Not Recovered/Not Resolved]
  - Fungal infection [Not Recovered/Not Resolved]
  - Decreased appetite [Not Recovered/Not Resolved]
  - Photopsia [Unknown]
  - Restlessness [Unknown]
  - Hot flush [Unknown]
  - Constipation [Unknown]
  - Nausea [Unknown]
  - Sleep disorder [Not Recovered/Not Resolved]
  - Fatigue [Unknown]
  - Blood pressure increased [Unknown]
  - Mood altered [Unknown]
  - Hyperhidrosis [Unknown]
  - Confusional state [Unknown]
  - Plasma cell myeloma [Unknown]
  - Myoclonus [Unknown]
  - Leukopenia [Unknown]

NARRATIVE: CASE EVENT DATE: 2020
